FAERS Safety Report 10019477 (Version 1)
Quarter: 2014Q1

REPORT INFORMATION
  Report Type: Spontaneous
  Country: FR (occurrence: FR)
  Receive Date: 20140318
  Receipt Date: 20140318
  Transmission Date: 20141002
  Serious: Yes (Hospitalization, Other)
  Sender: FDA-Public Use
  Company Number: FR-PFIZER INC-2014072684

PATIENT
  Age: 44 Year
  Sex: Female

DRUGS (1)
  1. TRINORDIOL [Suspect]
     Indication: CONTRACEPTION
     Route: 048

REACTIONS (5)
  - Deep vein thrombosis [Recovered/Resolved]
  - Metrorrhagia [Unknown]
  - Anaemia [Unknown]
  - Fibroma [Unknown]
  - Uterine haemorrhage [Unknown]
